FAERS Safety Report 6358101-7 (Version None)
Quarter: 2009Q3

REPORT INFORMATION
  Report Type: 
  Country: None (occurrence: None)
  Receive Date: 20090916
  Receipt Date: 20090908
  Transmission Date: 20100115
  Serious: Yes (Death, Other)
  Sender: FDA-Public Use
  Company Number: JP-BAYER-200913002BYL

PATIENT
  Age: 79 Year
  Sex: Female

DRUGS (10)
  1. NEXAVAR [Suspect]
     Indication: HEPATIC CANCER STAGE IV
     Dosage: TOTAL DAILY DOSE: 400 MG  UNIT DOSE: 200 MG
     Route: 048
     Dates: start: 20090716, end: 20090817
  2. MAGLAX [Concomitant]
     Route: 048
     Dates: end: 20090824
  3. MUCOSTA [Concomitant]
     Route: 048
     Dates: end: 20090824
  4. TAKEPRON [Concomitant]
     Route: 048
     Dates: end: 20090824
  5. LASIX [Concomitant]
     Route: 048
     Dates: end: 20090824
  6. ALDACTONE [Concomitant]
     Route: 048
     Dates: end: 20090824
  7. LIVACT [Concomitant]
     Route: 048
     Dates: end: 20090824
  8. CONFATANIN [Concomitant]
     Route: 048
     Dates: end: 20090824
  9. MAALOX [Concomitant]
     Route: 048
     Dates: end: 20090824
  10. URSO 250 [Concomitant]
     Route: 048
     Dates: end: 20090824

REACTIONS (8)
  - CONSTIPATION [None]
  - HEPATIC ENCEPHALOPATHY [None]
  - HEPATIC NEOPLASM MALIGNANT [None]
  - HYPERAMMONAEMIA [None]
  - HYPOALBUMINAEMIA [None]
  - PLATELET COUNT DECREASED [None]
  - RED BLOOD CELL COUNT DECREASED [None]
  - WHITE BLOOD CELL COUNT DECREASED [None]
